FAERS Safety Report 10517799 (Version 2)
Quarter: 2014Q4

REPORT INFORMATION
  Report Type: Spontaneous
  Country: US (occurrence: US)
  Receive Date: 20141015
  Receipt Date: 20141130
  Transmission Date: 20150528
  Serious: No
  Sender: FDA-Public Use
  Company Number: US-AMGEN INC.-USASP2014078798

PATIENT
  Age: 68 Year
  Sex: Female

DRUGS (5)
  1. CYCLOSPORINE. [Concomitant]
     Active Substance: CYCLOSPORINE
     Dosage: 25 MG, QID
     Route: 048
  2. METHOTREXATE [Concomitant]
     Active Substance: METHOTREXATE
     Dosage: UNK MG, QWK
     Dates: start: 2014
  3. ENBREL [Suspect]
     Active Substance: ETANERCEPT
     Indication: PSORIASIS
     Dosage: 50 MG, QWK
     Route: 065
     Dates: start: 20071127, end: 2014
  4. HUMIRA [Concomitant]
     Active Substance: ADALIMUMAB
     Dosage: UNK MG, QWK
     Dates: start: 2014
  5. ENBREL [Suspect]
     Active Substance: ETANERCEPT
     Dosage: UNK
     Route: 065

REACTIONS (10)
  - Dysuria [Not Recovered/Not Resolved]
  - Joint swelling [Not Recovered/Not Resolved]
  - Chills [Recovered/Resolved]
  - Feeling cold [Recovered/Resolved]
  - Malaise [Not Recovered/Not Resolved]
  - Gait disturbance [Not Recovered/Not Resolved]
  - Erythrodermic psoriasis [Unknown]
  - Psoriasis [Not Recovered/Not Resolved]
  - Body temperature abnormal [Recovered/Resolved]
  - Fatigue [Not Recovered/Not Resolved]

NARRATIVE: CASE EVENT DATE: 201409
